FAERS Safety Report 11877998 (Version 1)
Quarter: 2015Q4

REPORT INFORMATION
  Report Type: Spontaneous
  Country: CZ (occurrence: CZ)
  Receive Date: 20151230
  Receipt Date: 20151230
  Transmission Date: 20160305
  Serious: Yes (Other)
  Sender: FDA-Public Use
  Company Number: CZ-ACCORD-036587

PATIENT
  Age: 45 Year
  Sex: Male

DRUGS (7)
  1. IBUPROFEN. [Suspect]
     Active Substance: IBUPROFEN
     Indication: PAIN
  2. FENTANYL. [Concomitant]
     Active Substance: FENTANYL
     Indication: PAIN
     Dosage: FENTANYL IN PATCH
  3. TRAMADOL/TRAMADOL HYDROCHLORIDE [Suspect]
     Active Substance: TRAMADOL HYDROCHLORIDE
     Indication: PAIN
  4. ZOLEDRONIC ACID [Suspect]
     Active Substance: ZOLEDRONIC ACID
     Indication: PROPHYLAXIS
     Dosage: 1 IN EVERY 4 WEEKS
     Route: 042
     Dates: start: 201402
  5. OXYCODONE [Concomitant]
     Active Substance: OXYCODONE
     Indication: PAIN
  6. NIMESULIDE [Concomitant]
     Active Substance: NIMESULIDE
     Indication: PAIN
  7. SUNITINIB [Concomitant]
     Active Substance: SUNITINIB
     Indication: RENAL CANCER

REACTIONS (3)
  - Renal impairment [Recovered/Resolved]
  - Drug ineffective [Unknown]
  - Osteonecrosis of jaw [Recovered/Resolved]
